FAERS Safety Report 25645723 (Version 4)
Quarter: 2025Q3

REPORT INFORMATION
  Report Type: Spontaneous
  Country: CA (occurrence: CA)
  Receive Date: 20250805
  Receipt Date: 20250910
  Transmission Date: 20251020
  Serious: Yes (Hospitalization, Other)
  Sender: PFIZER
  Company Number: CA-PFIZER INC-202500107547

PATIENT
  Age: 68 Year
  Sex: Female
  Weight: 65 kg

DRUGS (7)
  1. IXIFI [Suspect]
     Active Substance: INFLIXIMAB-QBTX
     Indication: Crohn^s disease
     Route: 042
     Dates: start: 202505
  2. IXIFI [Suspect]
     Active Substance: INFLIXIMAB-QBTX
     Route: 042
     Dates: start: 20250702
  3. IXIFI [Suspect]
     Active Substance: INFLIXIMAB-QBTX
     Route: 042
     Dates: start: 20250730, end: 20250730
  4. IXIFI [Suspect]
     Active Substance: INFLIXIMAB-QBTX
     Route: 042
     Dates: start: 20250827
  5. ALBUTEROL [Concomitant]
     Active Substance: ALBUTEROL
  6. UMECLIDINIUM [Concomitant]
     Active Substance: UMECLIDINIUM
  7. VILANTEROL [Concomitant]
     Active Substance: VILANTEROL

REACTIONS (11)
  - Influenza [Unknown]
  - Diarrhoea [Recovering/Resolving]
  - Condition aggravated [Not Recovered/Not Resolved]
  - Melanocytic naevus [Unknown]
  - Blood albumin decreased [Unknown]
  - Malaise [Unknown]
  - Candida infection [Unknown]
  - Postoperative wound infection [Unknown]
  - Arthralgia [Not Recovered/Not Resolved]
  - Drug level decreased [Unknown]
  - Off label use [Unknown]

NARRATIVE: CASE EVENT DATE: 20250101
